FAERS Safety Report 18997332 (Version 2)
Quarter: 2021Q1

REPORT INFORMATION
  Report Type: Report from Study
  Country: IT (occurrence: IT)
  Receive Date: 20210311
  Receipt Date: 20210319
  Transmission Date: 20210420
  Serious: Yes (Death, Hospitalization)
  Sender: FDA-Public Use
  Company Number: IT-ROCHE-2713170

PATIENT
  Age: 63 Year
  Sex: Male
  Weight: 118 kg

DRUGS (10)
  1. DELTACORTENE [Concomitant]
     Active Substance: PREDNISONE
  2. ATEZOLIZUMAB. [Suspect]
     Active Substance: ATEZOLIZUMAB
     Indication: HEPATOCELLULAR CARCINOMA
     Dosage: DATE OF MOST RECENT DOSE ADMINISTERED PRIOR TO SAE ONSET: 03/SEP/2020
     Route: 041
     Dates: start: 20191224, end: 20200903
  3. URSODEOXYCHOLIC ACID [Concomitant]
     Active Substance: URSODIOL
  4. PARACETAMOL [Concomitant]
     Active Substance: ACETAMINOPHEN
  5. SINEMET [Concomitant]
     Active Substance: CARBIDOPA\LEVODOPA
  6. MADOPAR [Concomitant]
     Active Substance: BENSERAZIDE HYDROCHLORIDE\LEVODOPA
  7. XL184 [Suspect]
     Active Substance: CABOZANTINIB
     Indication: HEPATOCELLULAR CARCINOMA
     Dosage: DATE OF MOST RECENT DOSE ADMINISTERED PRIOR TO SAE ONSET: 23/SEP/2020
     Route: 048
     Dates: start: 20191224, end: 20200923
  8. SIRIO [Concomitant]
     Active Substance: CARBIDOPA\MELEVODOPA
  9. LACTULOSE. [Concomitant]
     Active Substance: LACTULOSE
  10. DULOXETINE. [Concomitant]
     Active Substance: DULOXETINE

REACTIONS (1)
  - Hepatocellular carcinoma [Fatal]

NARRATIVE: CASE EVENT DATE: 20201017
